FAERS Safety Report 16278248 (Version 1)
Quarter: 2019Q2

REPORT INFORMATION
  Report Type: Spontaneous
  Country: GB (occurrence: GB)
  Receive Date: 20190506
  Receipt Date: 20190506
  Transmission Date: 20190711
  Serious: Yes (Other)
  Sender: FDA-Public Use
  Company Number: GB-MYLANLABS-2019M1042953

PATIENT
  Age: 75 Year
  Sex: Male
  Weight: 78 kg

DRUGS (12)
  1. WARFARIN SODIUM. [Concomitant]
     Active Substance: WARFARIN SODIUM
     Dosage: DOSE AS WARFARIN CLINIC DIRECTS.  TAKE AT 6PM.
     Dates: start: 20180615
  2. SODIUM CITRATE. [Concomitant]
     Active Substance: SODIUM CITRATE
     Dosage: 3 DOSAGE FORM, QD
     Dates: start: 20181112, end: 20181114
  3. DICLOFENAC DIETHYLAMINE [Concomitant]
     Active Substance: DICLOFENAC DIETHYLAMINE
     Dosage: APPLY UP TO 3 TIMES A DAY.
     Dates: start: 20180615
  4. AMIAS [Concomitant]
     Active Substance: CANDESARTAN CILEXETIL
     Dosage: NIGHT
     Dates: start: 20180615
  5. PREDNISOLONE. [Concomitant]
     Active Substance: PREDNISOLONE
     Dosage: AND REDUCE AS DIRECTED
     Dates: start: 20180621
  6. NITROFURANTOIN. [Concomitant]
     Active Substance: NITROFURANTOIN
     Dosage: FOR MEN AND URINARY TRACT INFECTIONS IN PREGNANCY (AVOID AT TERM).
     Dates: start: 20181112, end: 20181119
  7. EPLERENONE. [Suspect]
     Active Substance: EPLERENONE
     Indication: PRODUCT USED FOR UNKNOWN INDICATION
     Dosage: 12.5 MILLIGRAM, QOD
     Dates: start: 20181024
  8. LANSOPRAZOLE. [Concomitant]
     Active Substance: LANSOPRAZOLE
     Dosage: 1 DOSAGE FORM, QD
     Dates: start: 20180615
  9. COLCHICINE. [Concomitant]
     Active Substance: COLCHICINE
     Dosage: WITH MAXIMUM OF 12 IN 4 DAYS
     Dates: start: 20180615
  10. FLUCLOXACILLIN [Concomitant]
     Active Substance: FLUCLOXACILLIN
     Dosage: 4 DOSAGE FORM, QD
     Dates: start: 20181009, end: 20181016
  11. FUROSEMIDE. [Concomitant]
     Active Substance: FUROSEMIDE
     Dosage: MORNING AND AT 6PM.
     Dates: start: 20180615
  12. GLYCERYL TRINITRATE [Concomitant]
     Active Substance: NITROGLYCERIN
     Dosage: PUFF
     Dates: start: 20180615

REACTIONS (3)
  - Dyspnoea [Recovered/Resolved]
  - Palpitations [Recovered/Resolved]
  - Oedema [Unknown]

NARRATIVE: CASE EVENT DATE: 20181120
